FAERS Safety Report 8428603-8 (Version None)
Quarter: 2012Q2

REPORT INFORMATION
  Report Type: 
  Country: None (occurrence: None)
  Receive Date: 20120606
  Receipt Date: 20120606
  Transmission Date: 20120825
  Serious: Yes (Hospitalization, Other)
  Sender: FDA-Public Use
  Company Number: None

PATIENT
  Sex: Male

DRUGS (1)
  1. LORCET-HD [Suspect]
     Dosage: 3 TO 4 DAILY PO
     Route: 048
     Dates: start: 20120420, end: 20120425

REACTIONS (3)
  - MUSCULOSKELETAL DISCOMFORT [None]
  - PRODUCT TASTE ABNORMAL [None]
  - PRODUCT QUALITY ISSUE [None]
